FAERS Safety Report 15165557 (Version 1)
Quarter: 2018Q3

REPORT INFORMATION
  Report Type: Spontaneous
  Country: US (occurrence: US)
  Receive Date: 20180719
  Receipt Date: 20180719
  Transmission Date: 20181010
  Serious: No
  Sender: FDA-Public Use
  Company Number: US-PRINSTON PHARMACEUTICAL INC.-2017PRN00491

PATIENT
  Age: 51 Year
  Sex: Female
  Weight: 58.96 kg

DRUGS (3)
  1. CLONAZEPAM. [Suspect]
     Active Substance: CLONAZEPAM
     Indication: ANXIETY
  2. CLONAZEPAM. [Suspect]
     Active Substance: CLONAZEPAM
     Indication: SLEEP DISORDER
  3. CLONAZEPAM. [Suspect]
     Active Substance: CLONAZEPAM
     Indication: PANIC DISORDER
     Dosage: 1 MG, 1X/DAY
     Route: 048
     Dates: start: 2002

REACTIONS (7)
  - Palpitations [Recovered/Resolved]
  - Drug administration error [Not Recovered/Not Resolved]
  - Insomnia [Unknown]
  - Unevaluable event [Unknown]
  - Fatigue [Unknown]
  - Panic reaction [Recovered/Resolved]
  - Drug ineffective [Unknown]

NARRATIVE: CASE EVENT DATE: 20171016
